FAERS Safety Report 5208953-9 (Version None)
Quarter: 2007Q1

REPORT INFORMATION
  Report Type: 
  Country: None (occurrence: None)
  Receive Date: 20070111
  Receipt Date: 20070111
  Transmission Date: 20070707
  Serious: Yes (Other)
  Sender: FDA-Public Use
  Company Number: None

PATIENT
  Age: 34 Year
  Sex: Female
  Weight: 59.8748 kg

DRUGS (2)
  1. SETRALINE HCL [Suspect]
     Indication: ANXIETY
     Dosage: 1 TABLET ONCE A DAY PO
     Route: 048
  2. SETRALINE HCL [Suspect]
     Indication: DEPRESSION
     Dosage: 1 TABLET ONCE A DAY PO
     Route: 048

REACTIONS (11)
  - AGITATION [None]
  - ANXIETY [None]
  - DIZZINESS [None]
  - EXOPHTHALMOS [None]
  - FEELING ABNORMAL [None]
  - INSOMNIA [None]
  - MIGRAINE [None]
  - MOOD ALTERED [None]
  - PALPITATIONS [None]
  - PHARMACEUTICAL PRODUCT COMPLAINT [None]
  - THERAPEUTIC RESPONSE UNEXPECTED WITH DRUG SUBSTITUTION [None]
